FAERS Safety Report 6141031-3 (Version None)
Quarter: 2009Q2

REPORT INFORMATION
  Report Type: 
  Country: None (occurrence: None)
  Receive Date: 20090402
  Receipt Date: 20081014
  Transmission Date: 20091009
  Serious: No
  Sender: FDA-Public Use
  Company Number: US-KINGPHARMUSA00001-K200801198

PATIENT
  Sex: Male

DRUGS (3)
  1. SKELAXIN [Suspect]
     Indication: BACK PAIN
     Dosage: UNK
     Route: 048
     Dates: start: 20080901
  2. LIDODERM [Suspect]
     Indication: BACK PAIN
     Route: 062
     Dates: start: 20080901
  3. NARCOTIC INJECTABLE [Suspect]
     Indication: BACK PAIN
     Dosage: UNK, SINGLE
     Route: 030
     Dates: start: 20080901

REACTIONS (1)
  - RASH [None]
